FAERS Safety Report 9294800 (Version 2)
Quarter: 2013Q2

REPORT INFORMATION
  Report Type: Spontaneous
  Country: CZ (occurrence: CZ)
  Receive Date: 20130517
  Receipt Date: 20130522
  Transmission Date: 20140414
  Serious: Yes (Hospitalization, Other)
  Sender: FDA-Public Use
  Company Number: CZ-ROCHE-1225335

PATIENT
  Sex: Female
  Weight: 59 kg

DRUGS (7)
  1. ROACTEMRA [Suspect]
     Indication: RHEUMATOID ARTHRITIS
     Route: 042
     Dates: start: 200906, end: 201012
  2. ROACTEMRA [Suspect]
     Route: 042
     Dates: start: 201210, end: 201303
  3. METHOTREXATUM [Concomitant]
     Route: 048
     Dates: start: 20070509
  4. ACIDUM FOLICUM [Concomitant]
     Route: 065
     Dates: start: 20070509
  5. NIMESULIDUM [Concomitant]
     Route: 065
  6. PERINDOPRILUM [Concomitant]
     Route: 065
     Dates: start: 201201
  7. ESCITALOPRAM [Concomitant]
     Route: 065
     Dates: start: 20130102

REACTIONS (1)
  - Uterine cancer [Unknown]
